FAERS Safety Report 19115264 (Version 2)
Quarter: 2022Q4

REPORT INFORMATION
  Report Type: Report from Study
  Country: DE (occurrence: DE)
  Receive Date: 20210409
  Receipt Date: 20221130
  Transmission Date: 20230113
  Serious: Yes (Other)
  Sender: FDA-Public Use
  Company Number: DE-MERCK HEALTHCARE KGAA-9185333

PATIENT
  Age: 50 Year
  Sex: Male
  Weight: 98 kg

DRUGS (8)
  1. BISOPROLOL [Suspect]
     Active Substance: BISOPROLOL
     Indication: Cardiomyopathy
     Dosage: DOSE INCREASED (UNSPECIFIED DOSE)
     Route: 048
  2. BISOPROLOL [Suspect]
     Active Substance: BISOPROLOL
     Dosage: 2.5 MILLIGRAM
     Route: 048
     Dates: start: 20161001
  3. BISOPROLOL [Suspect]
     Active Substance: BISOPROLOL
     Dosage: DOSE DECREASED (UNSPECIFIED DOSE)
     Route: 048
     Dates: start: 2020
  4. SAIZEN [Suspect]
     Active Substance: SOMATROPIN
     Indication: Growth hormone deficiency
     Dosage: 0.15 (UNSPECIFIED UNITS)
     Route: 058
     Dates: start: 20140505, end: 202005
  5. SAIZEN [Suspect]
     Active Substance: SOMATROPIN
     Dosage: 0.3 MILLIGRAM, QD
     Route: 058
     Dates: end: 20200601
  6. SAIZEN [Suspect]
     Active Substance: SOMATROPIN
     Dosage: UNK
     Route: 058
     Dates: start: 20200904
  7. SAIZEN [Concomitant]
     Active Substance: SOMATROPIN
     Indication: Growth hormone deficiency
     Dosage: 0.15 (UNIT UNSPECIFIED)
     Route: 058
     Dates: start: 20140505, end: 202005
  8. SAIZEN [Concomitant]
     Active Substance: SOMATROPIN
     Dosage: 0.3 MILLIGRAM, QD
     Route: 058
     Dates: end: 20200601

REACTIONS (1)
  - Cardiovascular disorder [Recovered/Resolved]

NARRATIVE: CASE EVENT DATE: 20200602
